FAERS Safety Report 5478501-7 (Version None)
Quarter: 2007Q4

REPORT INFORMATION
  Report Type: 
  Country: None (occurrence: None)
  Receive Date: 20071005
  Receipt Date: 20070926
  Transmission Date: 20080405
  Serious: Yes (Other)
  Sender: FDA-Public Use
  Company Number: US-ROCHE-521818

PATIENT
  Age: 59 Year
  Sex: Female
  Weight: 77.1 kg

DRUGS (4)
  1. BONIVA [Suspect]
     Indication: OSTEOPOROSIS
     Route: 048
     Dates: start: 20070201, end: 20070501
  2. BONIVA [Suspect]
     Route: 048
     Dates: start: 20070923
  3. HUMIRA [Concomitant]
     Indication: RHEUMATOID ARTHRITIS
  4. QUESTRAN [Concomitant]
     Indication: IRRITABLE BOWEL SYNDROME

REACTIONS (3)
  - BACK PAIN [None]
  - COLITIS [None]
  - RASH PAPULAR [None]
